FAERS Safety Report 9796857 (Version 1)
Quarter: 2014Q1

REPORT INFORMATION
  Report Type: Spontaneous
  Country: CH (occurrence: CH)
  Receive Date: 20140103
  Receipt Date: 20140103
  Transmission Date: 20141002
  Serious: Yes (Hospitalization)
  Sender: FDA-Public Use
  Company Number: CH-OTSUKA-US-2013-12448

PATIENT
  Age: 54 Year
  Sex: Male

DRUGS (25)
  1. BUSULFEX [Suspect]
     Indication: PROPHYLAXIS
     Dosage: 64 MG MILLIGRAM(S), QID
     Route: 041
     Dates: start: 20131128, end: 20131201
  2. ATG FRESENIUS [Suspect]
     Indication: PROPHYLAXIS
     Dosage: 1600 MG MILLIGRAM(S), QD
     Route: 041
     Dates: start: 20131201, end: 20131201
  3. ENDOXAN [Suspect]
     Indication: PROPHYLAXIS
     Dosage: 4800 MG MILLIGRAM(S), QD
     Route: 041
     Dates: start: 20131126, end: 20131127
  4. SOLUMEDROL [Suspect]
     Indication: PROPHYLAXIS
     Dosage: 80 MG MILLIGRAM(S), QD
     Route: 041
     Dates: start: 20131129, end: 20131201
  5. AMIKIN [Suspect]
     Indication: INFECTION PROPHYLAXIS
     Dosage: 1 G GRAM(S), QD
     Route: 041
     Dates: start: 20131128, end: 20131130
  6. NOPIL [Suspect]
     Indication: PROPHYLAXIS
     Dosage: 1 TAB, TIW
     Route: 048
     Dates: start: 20131122
  7. CEFEPIM [Suspect]
     Indication: BACTERIAL INFECTION
     Dosage: 2 G GRAM(S), TID
     Route: 041
     Dates: start: 20131128, end: 20131205
  8. DIFLUCAN [Suspect]
     Indication: PROPHYLAXIS
     Dosage: 400 MG MILLIGRAM(S), QW
     Route: 048
     Dates: start: 20131121
  9. VALTREX [Suspect]
     Indication: PROPHYLAXIS
     Dosage: 500 MG MILLIGRAM(S), BID
     Route: 048
     Dates: start: 20131121
  10. LASIX [Suspect]
     Indication: DIURETIC THERAPY
     Dosage: 1 DF DOSAGE FORM, PRN
     Route: 041
     Dates: start: 20131126
  11. PANTOZOL [Suspect]
     Indication: PROPHYLAXIS
     Dosage: 40 MG MILLIGRAM(S), UNK
     Route: 048
     Dates: start: 20131122
  12. ZYLORIC [Suspect]
     Indication: GOUT
     Dosage: 300 MG MILLIGRAM(S), QD
     Route: 048
     Dates: start: 20131121, end: 20131203
  13. ALOXI [Suspect]
     Indication: NAUSEA
     Dosage: 0.25 MG MILLIGRAM(S), QD
     Route: 041
     Dates: start: 20131126, end: 20131126
  14. ALOXI [Suspect]
     Indication: VOMITING
  15. UROMITEXAN [Suspect]
     Indication: PROPHYLAXIS
     Dosage: 1 DF DOSAGE FORM, PRN
     Route: 041
     Dates: start: 20131126, end: 20131128
  16. EMEND [Suspect]
     Indication: NAUSEA
     Dosage: 80 MG MILLIGRAM(S), QD
     Route: 041
     Dates: start: 20131126, end: 20131203
  17. EMEND [Suspect]
     Indication: VOMITING
  18. SANDIMMUN [Concomitant]
     Indication: PRODUCT USED FOR UNKNOWN INDICATION
     Dosage: 225 MG MILLIGRAM(S), UNK
     Dates: start: 20131201, end: 20131205
  19. SOLUCORTEF [Concomitant]
     Indication: PRODUCT USED FOR UNKNOWN INDICATION
     Dosage: UNK
     Dates: start: 20131204, end: 20131204
  20. FORTECORTIN [Concomitant]
     Indication: PRODUCT USED FOR UNKNOWN INDICATION
     Dosage: UNK
     Dates: start: 20131126, end: 20131129
  21. TAVEGYL [Concomitant]
     Indication: PRODUCT USED FOR UNKNOWN INDICATION
     Dosage: UNK
     Route: 042
     Dates: start: 20131129, end: 20131201
  22. PASPERTIN [Concomitant]
     Indication: PRODUCT USED FOR UNKNOWN INDICATION
     Dosage: UNK
     Route: 042
     Dates: start: 20131127, end: 20131127
  23. HEPARIN [Concomitant]
     Indication: PRODUCT USED FOR UNKNOWN INDICATION
     Dosage: UNK
     Route: 042
     Dates: start: 20131126
  24. URSOFALK [Concomitant]
     Indication: PRODUCT USED FOR UNKNOWN INDICATION
     Dosage: 250 MG MILLIGRAM(S), TID
     Route: 048
     Dates: start: 20131126
  25. TAZOBAC [Concomitant]
     Indication: PRODUCT USED FOR UNKNOWN INDICATION
     Dosage: UNK
     Route: 042
     Dates: start: 20131205, end: 20131206

REACTIONS (4)
  - Jaundice [Recovering/Resolving]
  - Haemolysis [Unknown]
  - Hyperbilirubinaemia [Recovering/Resolving]
  - Hepatic enzyme increased [Recovering/Resolving]
